FAERS Safety Report 9473826 (Version 1)
Quarter: 2013Q3

REPORT INFORMATION
  Report Type: Spontaneous
  Country: US (occurrence: US)
  Receive Date: 20130823
  Receipt Date: 20130823
  Transmission Date: 20140515
  Serious: No
  Sender: FDA-Public Use
  Company Number: US-BRISTOL-MYERS SQUIBB COMPANY-17027301

PATIENT
  Age: 64 Year
  Sex: Male
  Weight: 83.9 kg

DRUGS (4)
  1. SPRYCEL [Suspect]
     Route: 048
     Dates: start: 20080612
  2. LIPITOR [Concomitant]
  3. METOPROLOL [Concomitant]
  4. PLAVIX [Concomitant]

REACTIONS (1)
  - Pleural effusion [Unknown]
